FAERS Safety Report 11208915 (Version 4)
Quarter: 2015Q4

REPORT INFORMATION
  Report Type: Report from Study
  Country: ID (occurrence: ID)
  Receive Date: 20150622
  Receipt Date: 20151130
  Transmission Date: 20160304
  Serious: Yes (Death, Life-Threatening, Hospitalization, Other)
  Sender: FDA-Public Use
  Company Number: ID-BAYER-2015-203045

PATIENT
  Age: 51 Year
  Sex: Male

DRUGS (1)
  1. NEXAVAR [Suspect]
     Active Substance: SORAFENIB
     Indication: HEPATOCELLULAR CARCINOMA
     Dosage: 400 MG, QD
     Route: 048
     Dates: start: 20150424, end: 20150930

REACTIONS (19)
  - Alpha 1 foetoprotein increased [None]
  - Dysphonia [None]
  - Dry throat [Not Recovered/Not Resolved]
  - Abdominal pain upper [None]
  - Oedema peripheral [Recovered/Resolved]
  - Myalgia [None]
  - Weight decreased [Not Recovered/Not Resolved]
  - Diarrhoea [Not Recovered/Not Resolved]
  - Dry skin [Not Recovered/Not Resolved]
  - Fatigue [Not Recovered/Not Resolved]
  - Blood creatinine increased [Fatal]
  - Palpitations [None]
  - Condition aggravated [Fatal]
  - Oedema peripheral [Fatal]
  - Abdominal distension [Not Recovered/Not Resolved]
  - Epistaxis [None]
  - Hepatic failure [None]
  - Alopecia [None]
  - Frequent bowel movements [None]

NARRATIVE: CASE EVENT DATE: 2015
